FAERS Safety Report 11507078 (Version 10)
Quarter: 2016Q3

REPORT INFORMATION
  Report Type: Report from Study
  Country: AU (occurrence: AU)
  Receive Date: 20150915
  Receipt Date: 20160830
  Transmission Date: 20161109
  Serious: Yes (Hospitalization, Other)
  Sender: FDA-Public Use
  Company Number: PHHY2015AU036755

PATIENT
  Age: 59 Year
  Sex: Female

DRUGS (2)
  1. SUNITINIB [Suspect]
     Active Substance: SUNITINIB
     Indication: PRODUCT USED FOR UNKNOWN INDICATION
     Route: 065
  2. SANDOSTATIN LAR DEPOT [Suspect]
     Active Substance: OCTREOTIDE ACETATE
     Indication: CARCINOID SYNDROME
     Dosage: 30 MG, UNK
     Route: 030

REACTIONS (15)
  - Weight decreased [Not Recovered/Not Resolved]
  - Vomiting [Not Recovered/Not Resolved]
  - Product quality issue [Unknown]
  - Injection site mass [Recovered/Resolved]
  - Malignant neoplasm progression [Unknown]
  - Malaise [Not Recovered/Not Resolved]
  - Needle issue [Unknown]
  - Decreased appetite [Unknown]
  - Dyspnoea exertional [Not Recovered/Not Resolved]
  - Abdominal pain [Unknown]
  - Diarrhoea [Not Recovered/Not Resolved]
  - Metastases to lung [Unknown]
  - Vaginal discharge [Unknown]
  - Pleural effusion [Unknown]
  - Nausea [Not Recovered/Not Resolved]

NARRATIVE: CASE EVENT DATE: 20150314
